FAERS Safety Report 22213474 (Version 2)
Quarter: 2023Q2

REPORT INFORMATION
  Report Type: Spontaneous
  Country: CZ (occurrence: CZ)
  Receive Date: 20230414
  Receipt Date: 20230427
  Transmission Date: 20230722
  Serious: Yes (Hospitalization)
  Sender: FDA-Public Use
  Company Number: CZ-Accord-302936

PATIENT
  Age: 77 Year
  Sex: Male
  Weight: 80 kg

DRUGS (30)
  1. OXALIPLATIN [Suspect]
     Active Substance: OXALIPLATIN
     Indication: Product used for unknown indication
     Dosage: 1Q2W;?100MG/M2?DOSAGE FORM: CONCENTRATE FOR SOLUTION FOR INJECTION
     Dates: start: 20230110, end: 20230110
  2. OXALIPLATIN [Suspect]
     Active Substance: OXALIPLATIN
     Dosage: 1Q2W; RPD15:100 MILLIGRAM/SQ.METER?DOSAGE FORM: CONCENTRATE FOR SOLUTION FOR INJECTION
     Dates: start: 20230207
  3. OXALIPLATIN [Suspect]
     Active Substance: OXALIPLATIN
     Dosage: 1Q2W;RPD1: 100 MILLIGRAM/SQ. METER?DOSAGE FORM: CONCENTRATE FOR SOLUTION FOR INJECTION
     Dates: start: 20230124, end: 20230124
  4. GEMCITABINE [Suspect]
     Active Substance: GEMCITABINE
     Indication: Product used for unknown indication
     Dosage: 1Q2W?1000MG/M2?DOSAGE FORM: CONCENTRATE FOR SOLUTION FOR INFUSION
     Dates: start: 20230110, end: 20230110
  5. GEMCITABINE [Suspect]
     Active Substance: GEMCITABINE
     Dosage: RPD15: 1000 MILLIGRAM/SQ.METER, 1Q2W;?DOSAGE FORM: CONCENTRATE FOR SOLUTION FOR INFUSION
     Dates: start: 20230207
  6. GEMCITABINE [Suspect]
     Active Substance: GEMCITABINE
     Dosage: 1Q2W; RPD1: 1000 MILLIGRAM/SQ. METER?DOSAGE FORM: CONCENTRATE FOR SOLUTION FOR INFUSION
     Dates: start: 20230124, end: 20230124
  7. EPCORITAMAB [Suspect]
     Active Substance: EPCORITAMAB
     Indication: Product used for unknown indication
     Dosage: REPRIMING: PRIMING DOSE (RPD1): 0.16 MILLIGRAM, SINGLE;?DOSAGE FORM: CONCENTRATE FOR SOLUTION FOR IN
     Route: 058
     Dates: start: 20230124, end: 20230124
  8. EPCORITAMAB [Suspect]
     Active Substance: EPCORITAMAB
     Dosage: REPRIMING: FULL DOSE(RPD15): 48 MILLIGRAM, WEEKLY?DOSAGE FORM: CONCENTRATE FOR SOLUTION FOR INJECTIO
     Route: 058
     Dates: start: 20230207, end: 20230207
  9. EPCORITAMAB [Suspect]
     Active Substance: EPCORITAMAB
     Dosage: REPRIMING: INTERMEDIATE DOSE (RPD8) 0.8 MILLIGRAM, SINGLE?DOSAGE FORM: CONCENTRATE FOR SOLUTION FOR
     Route: 058
     Dates: start: 20230131, end: 20230131
  10. EPCORITAMAB [Suspect]
     Active Substance: EPCORITAMAB
     Dosage: PRIMING DOSE: 0.16 MILLIGRAM, SINGLE;?DOSAGE FORM: CONCENTRATE FOR SOLUTION FOR INJECTION
     Route: 058
     Dates: start: 20230110, end: 20230110
  11. EPCORITAMAB [Suspect]
     Active Substance: EPCORITAMAB
     Dosage: REPRIMING FULL DOSE (RPD22) 48 MILLIGRAM, WEEKLY;?DOSAGE FORM: CONCENTRATE FOR SOLUTION FOR INJECTIO
     Route: 058
     Dates: start: 20230228
  12. PREDNISONE [Concomitant]
     Active Substance: PREDNISONE
     Indication: Product used for unknown indication
     Route: 048
     Dates: start: 20230110, end: 20230113
  13. SULFAMETHOXAZOLE\TRIMETHOPRIM [Concomitant]
     Active Substance: SULFAMETHOXAZOLE\TRIMETHOPRIM
     Indication: Product used for unknown indication
     Dates: start: 20180924
  14. BISULEPIN [Concomitant]
     Active Substance: BISULEPIN
     Indication: Product used for unknown indication
     Dosage: 1 MG
     Dates: start: 20230228, end: 20230228
  15. BISULEPIN [Concomitant]
     Active Substance: BISULEPIN
     Dosage: 1 MG
     Dates: start: 20230207, end: 20230207
  16. BISULEPIN [Concomitant]
     Active Substance: BISULEPIN
     Dosage: 1 MG
     Dates: start: 20230131, end: 20230131
  17. BISULEPIN [Concomitant]
     Active Substance: BISULEPIN
     Dosage: 1 MG
     Dates: start: 20230124, end: 20230124
  18. BISULEPIN [Concomitant]
     Active Substance: BISULEPIN
     Dosage: 1 MG
     Dates: start: 20230110, end: 20230110
  19. GRANISETRON [Concomitant]
     Active Substance: GRANISETRON
     Indication: Product used for unknown indication
     Dates: start: 20230110
  20. ALLOPURINOL [Concomitant]
     Active Substance: ALLOPURINOL
     Dates: start: 20221107
  21. ALLOPURINOL [Concomitant]
     Active Substance: ALLOPURINOL
     Indication: Product used for unknown indication
  22. ACETAMINOPHEN [Concomitant]
     Active Substance: ACETAMINOPHEN
     Indication: Product used for unknown indication
     Route: 048
     Dates: start: 20230110, end: 20230110
  23. ACETAMINOPHEN [Concomitant]
     Active Substance: ACETAMINOPHEN
     Route: 048
     Dates: start: 20230124, end: 20230124
  24. PARALEN [Concomitant]
     Indication: Product used for unknown indication
     Dosage: 1000 MG
     Route: 048
     Dates: start: 20230207, end: 20230207
  25. PARALEN [Concomitant]
     Dosage: 1000 MG
     Route: 048
     Dates: start: 20230228, end: 20230228
  26. PARALEN [Concomitant]
     Dosage: 1000 MG
     Route: 048
     Dates: start: 20230131, end: 20230131
  27. PANTOPRAZOLE [Concomitant]
     Active Substance: PANTOPRAZOLE
     Indication: Product used for unknown indication
     Dates: start: 20221107
  28. FILGRASTIM [Concomitant]
     Active Substance: FILGRASTIM
     Indication: Product used for unknown indication
     Dates: start: 20230112, end: 20230115
  29. ACYCLOVIR [Concomitant]
     Active Substance: ACYCLOVIR
     Indication: Product used for unknown indication
     Dates: start: 20230109
  30. ZOVIRAX [Concomitant]
     Active Substance: ACYCLOVIR
     Indication: Product used for unknown indication
     Dates: start: 20180925

REACTIONS (2)
  - Vertigo [Recovered/Resolved]
  - Asthenia [Recovered/Resolved]

NARRATIVE: CASE EVENT DATE: 20230211
